FAERS Safety Report 16532672 (Version 16)
Quarter: 2024Q1

REPORT INFORMATION
  Report Type: Other
  Country: CA (occurrence: CA)
  Receive Date: 20190704
  Receipt Date: 20240318
  Transmission Date: 20240410
  Serious: Yes (Hospitalization, Other)
  Sender: FDA-Public Use
  Company Number: CA-002147023-PHHY2016CA150484

PATIENT
  Age: 79 Year
  Sex: Female
  Weight: 51 kg

DRUGS (26)
  1. XOLAIR [Suspect]
     Active Substance: OMALIZUMAB
     Indication: Asthma
     Route: 058
     Dates: start: 20160714
  2. XOLAIR [Suspect]
     Active Substance: OMALIZUMAB
     Route: 058
     Dates: start: 20160715
  3. XOLAIR [Suspect]
     Active Substance: OMALIZUMAB
     Route: 058
  4. XOLAIR [Suspect]
     Active Substance: OMALIZUMAB
     Route: 058
     Dates: start: 20161004
  5. XOLAIR [Suspect]
     Active Substance: OMALIZUMAB
     Route: 058
     Dates: start: 20161027
  6. XOLAIR [Suspect]
     Active Substance: OMALIZUMAB
     Route: 058
     Dates: start: 20170301
  7. XOLAIR [Suspect]
     Active Substance: OMALIZUMAB
     Route: 058
     Dates: start: 20170412
  8. XOLAIR [Suspect]
     Active Substance: OMALIZUMAB
     Route: 058
     Dates: start: 20170426
  9. XOLAIR [Suspect]
     Active Substance: OMALIZUMAB
     Route: 058
     Dates: start: 20170719
  10. XOLAIR [Suspect]
     Active Substance: OMALIZUMAB
     Route: 058
     Dates: start: 20170830
  11. XOLAIR [Suspect]
     Active Substance: OMALIZUMAB
     Route: 058
     Dates: start: 20180103
  12. XOLAIR [Suspect]
     Active Substance: OMALIZUMAB
     Dosage: 2 DOSAGE FORM, BIW
     Route: 058
     Dates: start: 20190116
  13. XOLAIR [Suspect]
     Active Substance: OMALIZUMAB
     Route: 058
  14. XOLAIR [Suspect]
     Active Substance: OMALIZUMAB
     Route: 058
  15. XOLAIR [Suspect]
     Active Substance: OMALIZUMAB
     Route: 058
  16. XOLAIR [Suspect]
     Active Substance: OMALIZUMAB
     Dosage: POWDER AND SOLVENT FOR SOLUTION FOR INJECTION
     Route: 058
  17. XOLAIR [Suspect]
     Active Substance: OMALIZUMAB
     Route: 058
  18. INFLUENZA VIRUS VACCINE [Concomitant]
     Active Substance: INFLUENZA VIRUS VACCINE
     Indication: Product used for unknown indication
     Route: 065
  19. SYMBICORT [Concomitant]
     Active Substance: BUDESONIDE\FORMOTEROL FUMARATE DIHYDRATE
     Indication: Product used for unknown indication
     Dosage: 2 DOSAGE FORM,
     Route: 065
  20. PULMICORT TURBUHALER [Concomitant]
     Active Substance: BUDESONIDE
     Indication: Product used for unknown indication
     Dosage: 2 DF, TID
     Route: 055
  21. VENTOLIN [Concomitant]
     Active Substance: ALBUTEROL SULFATE
     Indication: Product used for unknown indication
     Dosage: 2 DF
     Route: 055
  22. SPIRIVA [Concomitant]
     Active Substance: TIOTROPIUM BROMIDE MONOHYDRATE
     Indication: Product used for unknown indication
     Dosage: 1 DF, QD
     Route: 055
  23. MONTELUKAST [Concomitant]
     Active Substance: MONTELUKAST SODIUM
     Indication: Product used for unknown indication
     Dosage: UNK, QD
     Route: 065
  24. SALINE [Concomitant]
     Active Substance: SODIUM CHLORIDE
     Indication: Product used for unknown indication
     Dosage: NASAL RINSE
     Route: 065
  25. PREDNISONE [Concomitant]
     Active Substance: PREDNISONE
     Route: 065
  26. RESCUE [Concomitant]
     Dosage: UNK

REACTIONS (26)
  - Infection [Unknown]
  - Diarrhoea [Unknown]
  - Pneumonia [Unknown]
  - Illness [Unknown]
  - Localised infection [Unknown]
  - Fall [Unknown]
  - Limb injury [Unknown]
  - Influenza [Recovered/Resolved]
  - Blood pressure systolic increased [Unknown]
  - Hypersensitivity [Not Recovered/Not Resolved]
  - Haemorrhage [Unknown]
  - Pruritus [Not Recovered/Not Resolved]
  - Oxygen saturation decreased [Unknown]
  - Hand fracture [Unknown]
  - Pain in extremity [Recovering/Resolving]
  - Discomfort [Unknown]
  - Dyspnoea [Unknown]
  - Wheezing [Unknown]
  - Gastroenteritis viral [Recovering/Resolving]
  - Middle insomnia [Unknown]
  - Terminal insomnia [Unknown]
  - Skin discolouration [Unknown]
  - Asthma [Not Recovered/Not Resolved]
  - Productive cough [Unknown]
  - Product dose omission issue [Unknown]
  - Product availability issue [Unknown]

NARRATIVE: CASE EVENT DATE: 20161027
